FAERS Safety Report 4773443-4 (Version None)
Quarter: 2005Q3

REPORT INFORMATION
  Report Type: 
  Country: None (occurrence: None)
  Receive Date: 20050920
  Receipt Date: 20050907
  Transmission Date: 20060218
  Serious: Yes (Death, Hospitalization)
  Sender: FDA-Public Use
  Company Number: US-JNJFOC-20050902260

PATIENT
  Age: 11 Year
  Sex: Male

DRUGS (1)
  1. ASPIRIN [Suspect]
     Indication: RHEUMATIC FEVER
     Route: 048

REACTIONS (2)
  - DRUG TOXICITY [None]
  - REYE'S SYNDROME [None]
